FAERS Safety Report 9562309 (Version 2)
Quarter: 2013Q3

REPORT INFORMATION
  Report Type: Report from Study
  Country: US (occurrence: US)
  Receive Date: 20130927
  Receipt Date: 20130927
  Transmission Date: 20140515
  Serious: Yes (Other)
  Sender: FDA-Public Use
  Company Number: US-ACTELION-A-NJ2008-22236

PATIENT
  Age: 63 Year
  Sex: Male

DRUGS (2)
  1. TRACLEER [Suspect]
     Indication: PULMONARY ARTERIAL HYPERTENSION
     Dosage: UNK
     Route: 048
  2. COUMADIN [Concomitant]

REACTIONS (11)
  - Atrial fibrillation [Unknown]
  - Paraesthesia [Unknown]
  - Hypoaesthesia [Unknown]
  - Burning sensation [Unknown]
  - Hyperhidrosis [Unknown]
  - Prothrombin level abnormal [Unknown]
  - Syncope [Unknown]
  - Loss of consciousness [Unknown]
  - Dyspnoea [Unknown]
  - Dizziness [Unknown]
  - Chest discomfort [Unknown]
